FAERS Safety Report 6892731-9 (Version None)
Quarter: 2010Q3

REPORT INFORMATION
  Report Type: 
  Country: None (occurrence: None)
  Receive Date: 20100731
  Receipt Date: 20080825
  Transmission Date: 20110219
  Serious: No
  Sender: FDA-Public Use
  Company Number: US-PFIZER INC-2008070633

PATIENT
  Sex: Female

DRUGS (6)
  1. NEURONTIN [Suspect]
     Indication: TEMPORAL LOBE EPILEPSY
     Dates: start: 20080201
  2. NAPROXEN [Concomitant]
  3. DRUG, UNSPECIFIED [Concomitant]
  4. ACETYLSALICYLIC ACID SRT [Concomitant]
  5. ANALGESICS [Concomitant]
  6. ALL OTHER THERAPEUTIC PRODUCTS [Concomitant]

REACTIONS (2)
  - DRUG INEFFECTIVE [None]
  - FEELING ABNORMAL [None]
